FAERS Safety Report 7058492-8 (Version None)
Quarter: 2010Q4

REPORT INFORMATION
  Report Type: 
  Country: None (occurrence: None)
  Receive Date: 20101021
  Receipt Date: 20101021
  Transmission Date: 20110411
  Serious: Yes (Death)
  Sender: FDA-Public Use
  Company Number: None

PATIENT
  Age: 83 Year
  Sex: Male

DRUGS (11)
  1. REVLIMID [Suspect]
     Indication: MULTIPLE MYELOMA
     Dosage: REVLIMID 25MG 1 CAP DAILY X21D ORAL
     Route: 048
     Dates: start: 20100923
  2. REVLIMID [Suspect]
     Indication: MULTIPLE MYELOMA
     Dates: start: 20060306
  3. REVLIMID [Suspect]
     Indication: MULTIPLE MYELOMA
     Dates: start: 20090221
  4. DEXAMETHASONE [Concomitant]
  5. DIGOXIN [Concomitant]
  6. LISINOPRIL [Concomitant]
  7. SIMVASTATIN [Concomitant]
  8. MAGOX [Concomitant]
  9. LACTULOSE [Concomitant]
  10. COMBIVENT [Concomitant]
  11. PHENOBARBITAL TAB [Concomitant]

REACTIONS (11)
  - ASTHENIA [None]
  - DISEASE PROGRESSION [None]
  - FALL [None]
  - FEBRILE NEUTROPENIA [None]
  - GENERAL PHYSICAL HEALTH DETERIORATION [None]
  - HAEMATOCRIT DECREASED [None]
  - HAEMOGLOBIN DECREASED [None]
  - HYPERCALCAEMIA [None]
  - MULTIPLE MYELOMA [None]
  - SUBDURAL HAEMATOMA [None]
  - THROMBOCYTOPENIA [None]
